FAERS Safety Report 19861172 (Version 2)
Quarter: 2022Q1

REPORT INFORMATION
  Report Type: Spontaneous
  Country: ES (occurrence: ES)
  Receive Date: 20210921
  Receipt Date: 20220203
  Transmission Date: 20220423
  Serious: Yes (Hospitalization, Other)
  Sender: FDA-Public Use
  Company Number: ES-ACCORD-239066

PATIENT
  Age: 65 Year
  Sex: Male
  Weight: 80 kg

DRUGS (9)
  1. GEMCITABINE [Suspect]
     Active Substance: GEMCITABINE
     Indication: Diffuse large B-cell lymphoma stage IV
     Dosage: 1Q2W
     Route: 042
     Dates: start: 20210809
  2. OXALIPLATIN [Suspect]
     Active Substance: OXALIPLATIN
     Indication: Diffuse large B-cell lymphoma stage IV
     Dosage: SINGLE;
     Route: 042
     Dates: start: 20210809, end: 20210809
  3. EPCORITAMAB [Suspect]
     Active Substance: EPCORITAMAB
     Indication: Diffuse large B-cell lymphoma stage IV
     Dosage: PRIMING DOSE: 0.16 MILLIGRAM, SINGLE;
     Route: 058
     Dates: start: 20210809, end: 20210809
  4. POLARAMINE [Concomitant]
     Active Substance: DEXCHLORPHENIRAMINE MALEATE
     Dates: start: 20210809, end: 20210831
  5. ACETAMINOPHEN [Concomitant]
     Active Substance: ACETAMINOPHEN
     Dates: start: 20210809, end: 20210831
  6. FUROSEMIDE [Concomitant]
     Active Substance: FUROSEMIDE
  7. FOLIC ACID [Concomitant]
     Active Substance: FOLIC ACID
     Dates: start: 20210809
  8. SULFAMETHOXAZOLE\TRIMETHOPRIM [Concomitant]
     Active Substance: SULFAMETHOXAZOLE\TRIMETHOPRIM
     Dates: start: 20210728
  9. PANTOPRAZOLE SODIUM [Concomitant]
     Active Substance: PANTOPRAZOLE SODIUM
     Dates: start: 20210729

REACTIONS (2)
  - Pneumothorax [Recovered/Resolved]
  - Off label use [Unknown]

NARRATIVE: CASE EVENT DATE: 20210810
